FAERS Safety Report 7997061-X (Version None)
Quarter: 2011Q4

REPORT INFORMATION
  Report Type: 
  Country: None (occurrence: None)
  Receive Date: 20111216
  Receipt Date: 20111206
  Transmission Date: 20120403
  Serious: Yes (Death)
  Sender: FDA-Public Use
  Company Number: 1000026194

PATIENT
  Age: 67 Year
  Sex: Male

DRUGS (6)
  1. NEBIVOLOL HCL [Suspect]
     Dosage: ORAL
     Route: 048
  2. PLAVIX [Suspect]
     Dosage: ORAL
     Route: 048
     Dates: start: 20080101
  3. EZETIMIBE [Suspect]
     Dosage: ORAL
  4. CRESTOR [Suspect]
     Dosage: ORAL
     Route: 048
  5. COVERSYL (PERINODOPRIL ARGININE) [Suspect]
     Dosage: ORAL
     Route: 048
  6. ASPIRIN [Suspect]
     Dosage: ORAL
     Route: 048

REACTIONS (9)
  - BRADYPNOEA [None]
  - MYDRIASIS [None]
  - SPEECH DISORDER [None]
  - COMA [None]
  - BRAIN STEM HAEMORRHAGE [None]
  - MALAISE [None]
  - VIITH NERVE PARALYSIS [None]
  - HEMIPLEGIA [None]
  - APNOEA [None]
